FAERS Safety Report 6383661-X (Version None)
Quarter: 2009Q3

REPORT INFORMATION
  Report Type: 
  Country: None (occurrence: None)
  Receive Date: 20090928
  Receipt Date: 20090914
  Transmission Date: 20100115
  Serious: Yes (Congenital Anomaly)
  Sender: FDA-Public Use
  Company Number: AUR-APL-2009-00666

PATIENT
  Weight: 2.72 kg

DRUGS (7)
  1. ZIDOVUDINE [Suspect]
     Indication: ANTIVIRAL TREATMENT
     Dosage: BID - TRANSPLACEN
     Route: 064
     Dates: start: 20060411
  2. ABACAVIR [Suspect]
     Indication: ANTIVIRAL TREATMENT
     Dosage: TRANSPLACEN
     Route: 064
  3. KIVEXA [Suspect]
     Indication: ANTIVIRAL TREATMENT
     Dosage: TRANSPLACENTALLY
     Route: 064
  4. LAMIVUDINE [Suspect]
     Indication: ANTIVIRAL TREATMENT
     Dosage: BID - TRANSPLACENTALLY
     Route: 064
     Dates: start: 20060411
  5. NEVIRAPINE [Suspect]
     Indication: ANTIVIRAL TREATMENT
     Dosage: TRANSPLACENTALLY
  6. NORVIR [Suspect]
     Indication: ANTIVIRAL TREATMENT
     Dosage: 200MG - DAILY - TRANSPLACENTALLY
     Route: 064
     Dates: start: 20060411
  7. SAQUINAIR [Suspect]
     Indication: ANTIVIRAL TREATMENT
     Dosage: 2000MG - DAILY - TRANSPLACENTALLY
     Route: 064
     Dates: start: 20090411

REACTIONS (2)
  - ALPHA 1 FOETOPROTEIN AMNIOTIC FLUID ABNORMAL [None]
  - MATERNAL DRUGS AFFECTING FOETUS [None]
